FAERS Safety Report 4968834-2 (Version None)
Quarter: 2006Q2

REPORT INFORMATION
  Report Type: 
  Country: None (occurrence: None)
  Receive Date: 20060405
  Receipt Date: 20060323
  Transmission Date: 20061013
  Serious: Yes (Death, Hospitalization, Other)
  Sender: FDA-Public Use
  Company Number: US-2005-020304

PATIENT
  Age: 38 Year
  Sex: Female
  Weight: 113 kg

DRUGS (6)
  1. BETASERON [Suspect]
     Indication: MULTIPLE SCLEROSIS
     Dosage: SUBCUTANEOUS
     Route: 058
     Dates: start: 19950404
  2. OXYBUTYNIN [Concomitant]
  3. CLONAZEPAM [Concomitant]
  4. LISINOPRIL [Concomitant]
  5. HYOSCYAMINE [Concomitant]
  6. TYLENOL W/ CODEINE NO. 3 [Concomitant]

REACTIONS (15)
  - AGONAL RHYTHM [None]
  - BLOOD PRESSURE DECREASED [None]
  - COGNITIVE DETERIORATION [None]
  - COGNITIVE DISORDER [None]
  - DEMYELINATION [None]
  - HAEMATEMESIS [None]
  - HYPOTENSION [None]
  - HYPOTHERMIA [None]
  - LOSS OF CONSCIOUSNESS [None]
  - MENTAL DISORDER [None]
  - ORAL INTAKE REDUCED [None]
  - PNEUMONIA ASPIRATION [None]
  - RESPIRATORY FAILURE [None]
  - TACHYCARDIA [None]
  - URINARY TRACT INFECTION [None]
